FAERS Safety Report 6792574-0 (Version None)
Quarter: 2010Q2

REPORT INFORMATION
  Report Type: 
  Country: None (occurrence: None)
  Receive Date: 20100624
  Receipt Date: 20080820
  Transmission Date: 20101027
  Serious: No
  Sender: FDA-Public Use
  Company Number: US-PFIZER INC-2008069647

PATIENT
  Sex: Male

DRUGS (2)
  1. GEODON [Suspect]
     Indication: BIPOLAR DISORDER
     Dates: start: 20080805
  2. TYLENOL PM [Concomitant]

REACTIONS (3)
  - HYPERTENSION [None]
  - RASH [None]
  - UNEVALUABLE EVENT [None]
